FAERS Safety Report 4818639-8 (Version None)
Quarter: 2005Q4

REPORT INFORMATION
  Report Type: 
  Country: None (occurrence: None)
  Receive Date: 20051101
  Receipt Date: 20051019
  Transmission Date: 20060501
  Serious: Yes (Other)
  Sender: FDA-Public Use
  Company Number: 2005098554

PATIENT
  Age: 70 Year
  Sex: Male

DRUGS (4)
  1. VIAGRA [Suspect]
     Indication: ERECTILE DYSFUNCTION
     Dosage: (50 MG, AS NECESSARY), ORAL
     Route: 048
     Dates: start: 20000601, end: 20041101
  2. DYAZIDE [Concomitant]
  3. LISINOPRIL [Concomitant]
  4. ASPIRIN [Concomitant]

REACTIONS (2)
  - GLOBAL AMNESIA [None]
  - PANIC REACTION [None]
